FAERS Safety Report 9716692 (Version 1)
Quarter: 2013Q4

REPORT INFORMATION
  Report Type: Spontaneous
  Country: JP (occurrence: JP)
  Receive Date: 20131127
  Receipt Date: 20131127
  Transmission Date: 20140711
  Serious: Yes (Death)
  Sender: FDA-Public Use
  Company Number: JP-SA-2013SA122345

PATIENT
  Age: 50 Year
  Sex: Male
  Weight: 59.5 kg

DRUGS (2)
  1. ZOLPIDEM [Suspect]
     Indication: PRODUCT USED FOR UNKNOWN INDICATION
     Route: 048
  2. DIPHENHYDRAMINE HYDROCHLORIDE [Interacting]
     Indication: PRODUCT USED FOR UNKNOWN INDICATION
     Route: 065

REACTIONS (5)
  - Carbon monoxide poisoning [Fatal]
  - Alcohol poisoning [Fatal]
  - Toxicity to various agents [Fatal]
  - Completed suicide [Fatal]
  - Alcohol interaction [Unknown]
